FAERS Safety Report 8720355 (Version 2)
Quarter: 2013Q1

REPORT INFORMATION
  Report Type: Report from Study
  Country: JP (occurrence: JP)
  Receive Date: 20120813
  Receipt Date: 20130212
  Transmission Date: 20140127
  Serious: Yes (Other)
  Sender: FDA-Public Use
  Company Number: JP-009507513-1208JPN005025

PATIENT
  Age: 30 Year
  Sex: Male
  Weight: 100 kg

DRUGS (7)
  1. PEGINTRON [Suspect]
     Indication: CHRONIC HEPATITIS C
     Dosage: 1.5 MICROGRAM PER KILOGRAM, QW
     Route: 058
     Dates: start: 20120404, end: 20120502
  2. REBETOL [Suspect]
     Indication: CHRONIC HEPATITIS C
     Dosage: CUMULATIVE DOSE 2400 MG
     Route: 048
     Dates: start: 20120404, end: 20120502
  3. TELAVIC [Suspect]
     Indication: CHRONIC HEPATITIS C
     Dosage: 2250 MG, QD
     Route: 048
     Dates: start: 20120404, end: 20120502
  4. VOLTAREN SR [Concomitant]
     Dosage: UNK, PRN
     Route: 048
     Dates: start: 20120404, end: 20120502
  5. ALLEGRA [Concomitant]
     Route: 048
     Dates: start: 20120404, end: 20120502
  6. [COMPOSITION UNSPECIFIED] [Concomitant]
     Dosage: DAILY DOSE UNKNOWN, PRN
     Route: 061
     Dates: start: 20120406, end: 20120409
  7. ANTEBATE [Concomitant]
     Dosage: DAILY DOSE UNKNOWN, AS NEEDED
     Route: 061
     Dates: start: 20120406, end: 20120409

REACTIONS (4)
  - Malaise [Recovered/Resolved]
  - Nausea [Recovered/Resolved]
  - Rash [None]
  - Pruritus [None]
